FAERS Safety Report 8511941-8 (Version None)
Quarter: 2012Q3

REPORT INFORMATION
  Report Type: 
  Country: None (occurrence: None)
  Receive Date: 20120716
  Receipt Date: 20120712
  Transmission Date: 20120928
  Serious: Yes (Other)
  Sender: FDA-Public Use
  Company Number: PHHY2012NL060266

PATIENT
  Sex: Female

DRUGS (3)
  1. ZOMETA [Suspect]
     Indication: BREAST CANCER METASTATIC
     Dosage: 4 MG / 100 ML ONCE IN182 DAYS
     Route: 042
  2. ZOMETA [Suspect]
     Dosage: 4 MG / 100 ML ONCE PER 182 DAYS
     Route: 042
     Dates: start: 20110516
  3. ZOMETA [Suspect]
     Dosage: 4 MG / 100 ML ONCE PER 182 DAYS
     Route: 042
     Dates: start: 20120523

REACTIONS (2)
  - HIP FRACTURE [None]
  - DRUG INEFFECTIVE [None]
